FAERS Safety Report 6746139-7 (Version None)
Quarter: 2010Q2

REPORT INFORMATION
  Report Type: 
  Country: None (occurrence: None)
  Receive Date: 20100528
  Receipt Date: 20100223
  Transmission Date: 20101027
  Serious: No
  Sender: FDA-Public Use
  Company Number: GB-ASTRAZENECA-2010SE03416

PATIENT
  Age: 798 Month
  Sex: Male

DRUGS (2)
  1. PRILOSEC [Suspect]
     Route: 048
  2. CLOPIDOGREL [Suspect]
     Indication: ARTERIAL REPAIR
     Route: 048

REACTIONS (5)
  - LIVER INJURY [None]
  - MUSCLE DISORDER [None]
  - MUSCLE SPASMS [None]
  - POTENTIATING DRUG INTERACTION [None]
  - RENAL DISORDER [None]
